FAERS Safety Report 7928559-8 (Version None)
Quarter: 2011Q4

REPORT INFORMATION
  Report Type: 
  Country: None (occurrence: None)
  Receive Date: 20111118
  Receipt Date: 20111116
  Transmission Date: 20120403
  Serious: Yes (Hospitalization)
  Sender: FDA-Public Use
  Company Number: US-MERCK-1108USA03575

PATIENT
  Age: 77 Year
  Sex: Female

DRUGS (1)
  1. FOSAMAX [Suspect]
     Indication: OSTEOPOROSIS
     Route: 048
     Dates: start: 20040101, end: 20100101

REACTIONS (14)
  - ENTHESOPATHY [None]
  - OSTEOARTHRITIS [None]
  - RENAL FAILURE CHRONIC [None]
  - URINARY TRACT INFECTION [None]
  - DEHYDRATION [None]
  - SPINAL OSTEOARTHRITIS [None]
  - ASTHMA [None]
  - DRUG HYPERSENSITIVITY [None]
  - FEMUR FRACTURE [None]
  - RENAL FAILURE ACUTE [None]
  - HYPERTENSION [None]
  - LATEX ALLERGY [None]
  - BACK DISORDER [None]
  - EXOSTOSIS [None]
